FAERS Safety Report 8291528-5 (Version None)
Quarter: 2012Q2

REPORT INFORMATION
  Report Type: 
  Country: None (occurrence: None)
  Receive Date: 20120417
  Receipt Date: 20120412
  Transmission Date: 20120825
  Serious: No
  Sender: FDA-Public Use
  Company Number: US-PFIZER INC-2012092717

PATIENT
  Sex: Female
  Weight: 68.027 kg

DRUGS (2)
  1. RELPAX [Suspect]
     Indication: MIGRAINE
     Dosage: 40 MG, DAILY
     Dates: end: 20120322
  2. ZOLOFT [Concomitant]
     Indication: DEPRESSION
     Dosage: 100 MG, DALY

REACTIONS (1)
  - MIGRAINE [None]
